FAERS Safety Report 4743982-0 (Version None)
Quarter: 2005Q3

REPORT INFORMATION
  Report Type: 
  Country: None (occurrence: None)
  Receive Date: 20050809
  Receipt Date: 20050729
  Transmission Date: 20060218
  Serious: No
  Sender: FDA-Public Use
  Company Number: RS005280-GB

PATIENT
  Age: 31 Year
  Sex: Female
  Weight: 123 kg

DRUGS (1)
  1. RABEPRAZOLE SODIUM [Suspect]
     Dosage: 10 MG 1 IN 1 D ORAL
     Route: 048
     Dates: start: 20050616

REACTIONS (2)
  - ABORTION SPONTANEOUS [None]
  - DRUG EXPOSURE DURING PREGNANCY [None]
